FAERS Safety Report 4289908-8 (Version None)
Quarter: 2004Q1

REPORT INFORMATION
  Report Type: 
  Country: None (occurrence: None)
  Receive Date: 20040205
  Receipt Date: 20040123
  Transmission Date: 20041129
  Serious: No
  Sender: FDA-Public Use
  Company Number: 04H-028-0247641-00

PATIENT
  Age: 73 Year
  Sex: Male

DRUGS (4)
  1. FENTANYL CITRATE INJECTION, USP, 0.05MG/ML AMPULE (FENTANYL CITRATE) [Suspect]
     Indication: DISCOMFORT
     Dosage: SEE IMAGE
     Route: 042
     Dates: start: 20040113, end: 20040113
  2. FENTANYL CITRATE INJECTION, USP, 0.05MG/ML AMPULE (FENTANYL CITRATE) [Suspect]
     Indication: DRUG USE FOR UNKNOWN INDICATION
     Dosage: SEE IMAGE
     Route: 042
     Dates: start: 20040113, end: 20040113
  3. FENTANYL CITRATE INJECTION, USP, 0.05MG/ML AMPULE (FENTANYL CITRATE) [Suspect]
     Indication: DISCOMFORT
     Dosage: SEE IMAGE
     Route: 042
     Dates: start: 20040113
  4. FENTANYL CITRATE INJECTION, USP, 0.05MG/ML AMPULE (FENTANYL CITRATE) [Suspect]
     Indication: DRUG USE FOR UNKNOWN INDICATION
     Dosage: SEE IMAGE
     Route: 042
     Dates: start: 20040113

REACTIONS (6)
  - BLOOD PRESSURE IMMEASURABLE [None]
  - DRUG EFFECT INCREASED [None]
  - HYPERHIDROSIS [None]
  - OXYGEN SATURATION DECREASED [None]
  - PULSE ABSENT [None]
  - SKIN DISCOLOURATION [None]
